FAERS Safety Report 7434624-4 (Version None)
Quarter: 2011Q2

REPORT INFORMATION
  Report Type: 
  Country: None (occurrence: None)
  Receive Date: 20110421
  Receipt Date: 20110421
  Transmission Date: 20111010
  Serious: Yes (Hospitalization, Other)
  Sender: FDA-Public Use
  Company Number: None

PATIENT
  Age: 46 Year
  Sex: Female
  Weight: 63.5036 kg

DRUGS (4)
  1. THERACYS- BCG THERAPY [Suspect]
     Indication: NEOPLASM PROPHYLAXIS
     Dosage: 6 INTRAVESICAL
     Route: 043
     Dates: start: 20100701, end: 20100815
  2. THERACYS- BCG THERAPY [Suspect]
     Indication: BLADDER CANCER
     Dosage: 6 INTRAVESICAL
     Route: 043
     Dates: start: 20100701, end: 20100815
  3. THERACYS- BCG THERAPY [Suspect]
     Indication: NEOPLASM PROPHYLAXIS
     Dosage: 6 INTRAVESICAL
     Route: 043
     Dates: start: 20110208, end: 20110222
  4. THERACYS- BCG THERAPY [Suspect]
     Indication: BLADDER CANCER
     Dosage: 6 INTRAVESICAL
     Route: 043
     Dates: start: 20110208, end: 20110222

REACTIONS (4)
  - ARTHRALGIA [None]
  - JOINT SWELLING [None]
  - LOSS OF CONSCIOUSNESS [None]
  - ABASIA [None]
